FAERS Safety Report 11570988 (Version 1)
Quarter: 2015Q3

REPORT INFORMATION
  Report Type: Spontaneous
  Country: US (occurrence: US)
  Receive Date: 20150916
  Receipt Date: 20150916
  Transmission Date: 20151125
  Serious: No
  Sender: FDA-Public Use
  Company Number: US-ELI_LILLY_AND_COMPANY-US200909004031

PATIENT
  Age: 89 Year
  Sex: Female

DRUGS (2)
  1. FORTEO [Suspect]
     Active Substance: TERIPARATIDE
     Dosage: 20 UG, DAILY (1/D)
     Dates: start: 20090901
  2. INFLUENZA VACCINE [Concomitant]
     Active Substance: INFLUENZA VIRUS VACCINE

REACTIONS (6)
  - Urinary tract infection [Not Recovered/Not Resolved]
  - Atrial fibrillation [Not Recovered/Not Resolved]
  - Burning sensation [Not Recovered/Not Resolved]
  - Pollakiuria [Not Recovered/Not Resolved]
  - Malaise [Not Recovered/Not Resolved]
  - Bladder dilatation [Not Recovered/Not Resolved]

NARRATIVE: CASE EVENT DATE: 200909
